FAERS Safety Report 10931541 (Version 1)
Quarter: 2015Q1

REPORT INFORMATION
  Report Type: Spontaneous
  Country: US (occurrence: US)
  Receive Date: 20150319
  Receipt Date: 20150319
  Transmission Date: 20150721
  Serious: No
  Sender: FDA-Public Use
  Company Number: US-BAUSCH-SYM-2014-23180

PATIENT
  Sex: Female

DRUGS (1)
  1. TRETINOIN RX 0.025% 5R6 [Suspect]
     Active Substance: TRETINOIN
     Indication: SKIN WRINKLING
     Route: 061

REACTIONS (2)
  - Off label use [Unknown]
  - Sleep disorder [Unknown]
